FAERS Safety Report 10378200 (Version 1)
Quarter: 2014Q3

REPORT INFORMATION
  Report Type: Spontaneous
  Country: US (occurrence: US)
  Receive Date: 20140812
  Receipt Date: 20140812
  Transmission Date: 20150326
  Serious: No
  Sender: FDA-Public Use
  Company Number: US-ASTRAZENECA-2014SE55876

PATIENT
  Age: 45 Year
  Sex: Male
  Weight: 124.7 kg

DRUGS (3)
  1. GLIPIZIDE. [Concomitant]
     Active Substance: GLIPIZIDE
     Indication: DIABETES MELLITUS
     Route: 048
     Dates: start: 2003
  2. SEROQUEL [Suspect]
     Active Substance: QUETIAPINE FUMARATE
     Indication: BIPOLAR DISORDER
     Route: 048
     Dates: start: 2007, end: 2011
  3. SEROQUEL [Suspect]
     Active Substance: QUETIAPINE FUMARATE
     Indication: BIPOLAR DISORDER
     Route: 048
     Dates: start: 2002, end: 2007

REACTIONS (5)
  - Nipple pain [Unknown]
  - Gynaecomastia [Not Recovered/Not Resolved]
  - Diabetes mellitus [Unknown]
  - Weight increased [Unknown]
  - Hypertension [Unknown]

NARRATIVE: CASE EVENT DATE: 2003
